FAERS Safety Report 18687599 (Version 3)
Quarter: 2021Q1

REPORT INFORMATION
  Report Type: Report from Study
  Country: CO (occurrence: CO)
  Receive Date: 20201231
  Receipt Date: 20210129
  Transmission Date: 20210419
  Serious: Yes (Other)
  Sender: FDA-Public Use
  Company Number: NVSC2020CO342608

PATIENT
  Sex: Male

DRUGS (1)
  1. VOTRIENT [Suspect]
     Active Substance: PAZOPANIB HYDROCHLORIDE
     Indication: METASTATIC RENAL CELL CARCINOMA
     Dosage: 400 MG, QD (STARTED 2 YEARS AGO)
     Route: 048

REACTIONS (6)
  - Abdominal pain upper [Recovering/Resolving]
  - Diabetes mellitus [Unknown]
  - Eating disorder [Unknown]
  - Malaise [Unknown]
  - Fatigue [Unknown]
  - Dyspepsia [Recovering/Resolving]
